APPROVED DRUG PRODUCT: LEVOCETIRIZINE DIHYDROCHLORIDE
Active Ingredient: LEVOCETIRIZINE DIHYDROCHLORIDE
Strength: 5MG
Dosage Form/Route: TABLET;ORAL
Application: A090199 | Product #001 | TE Code: AB
Applicant: TEVA PHARMACEUTICALS USA
Approved: Aug 22, 2011 | RLD: No | RS: No | Type: RX